FAERS Safety Report 13577530 (Version 2)
Quarter: 2017Q2

REPORT INFORMATION
  Report Type: Report from Study
  Country: CA (occurrence: CA)
  Receive Date: 20170524
  Receipt Date: 20170530
  Transmission Date: 20170830
  Serious: Yes (Hospitalization, Other)
  Sender: FDA-Public Use
  Company Number: CA-JNJFOC-20170319572

PATIENT
  Sex: Male

DRUGS (1)
  1. REMICADE [Suspect]
     Active Substance: INFLIXIMAB
     Indication: ANKYLOSING SPONDYLITIS
     Route: 042
     Dates: start: 20140115

REACTIONS (8)
  - Diabetes mellitus [Unknown]
  - Benign neoplasm of spinal cord [Unknown]
  - Viral upper respiratory tract infection [Unknown]
  - Vomiting [Unknown]
  - Bacteraemia [Unknown]
  - Sinus congestion [Unknown]
  - Malaise [Unknown]
  - Cystitis [Not Recovered/Not Resolved]

NARRATIVE: CASE EVENT DATE: 2017
